FAERS Safety Report 22084669 (Version 1)
Quarter: 2023Q1

REPORT INFORMATION
  Report Type: Spontaneous
  Country: US (occurrence: None)
  Receive Date: 20230310
  Receipt Date: 20230310
  Transmission Date: 20230417
  Serious: Yes (Hospitalization, Disabling, Other)
  Sender: FDA-Public Use
  Company Number: None

PATIENT
  Age: 88 Year
  Sex: Male
  Weight: 53.1 kg

DRUGS (11)
  1. CARBOXYMETHYLCELLULOSE SODIUM [Suspect]
     Active Substance: CARBOXYMETHYLCELLULOSE SODIUM
     Dosage: FREQUENCY : TWICE A DAY;?
     Route: 047
     Dates: start: 20220715, end: 20220905
  2. METFORMIN [Concomitant]
     Active Substance: METFORMIN HYDROCHLORIDE
  3. AMLODIPINE [Concomitant]
     Active Substance: AMLODIPINE BESYLATE
  4. PRAVASTATIN [Concomitant]
     Active Substance: PRAVASTATIN
  5. MYRBETRIQ [Concomitant]
     Active Substance: MIRABEGRON
  6. OMEPRAZOLE [Concomitant]
     Active Substance: OMEPRAZOLE
  7. LOSARTAN [Concomitant]
     Active Substance: LOSARTAN
  8. FINASTERIDE [Concomitant]
     Active Substance: FINASTERIDE
  9. VIT B12 [Concomitant]
  10. Supcr C vitamins [Concomitant]
  11. LUBRICATING EYE DROPS [Concomitant]
     Active Substance: CARBOXYMETHYLCELLULOSE SODIUM

REACTIONS (5)
  - Pain [None]
  - Visual impairment [None]
  - Fatigue [None]
  - Pseudomonas infection [None]
  - Blindness unilateral [None]

NARRATIVE: CASE EVENT DATE: 20220905
